FAERS Safety Report 15814182 (Version 2)
Quarter: 2019Q2

REPORT INFORMATION
  Report Type: Report from Study
  Country: US (occurrence: US)
  Receive Date: 20190111
  Receipt Date: 20190603
  Transmission Date: 20190711
  Serious: Yes (Hospitalization, Other)
  Sender: FDA-Public Use
  Company Number: PHEH2019US001078

PATIENT
  Sex: Female

DRUGS (1)
  1. ENTRESTO [Suspect]
     Active Substance: SACUBITRIL\VALSARTAN
     Indication: PRODUCT USED FOR UNKNOWN INDICATION
     Route: 048

REACTIONS (8)
  - Heart rate increased [Unknown]
  - Syncope [Unknown]
  - Somnolence [Unknown]
  - Blood pressure decreased [Unknown]
  - Fatigue [Unknown]
  - Nausea [Unknown]
  - Drug ineffective [Unknown]
  - Cough [Unknown]
